FAERS Safety Report 9443625 (Version 2)
Quarter: 2016Q2

REPORT INFORMATION
  Report Type: Report from Study
  Country: DE (occurrence: DE)
  Receive Date: 20130806
  Receipt Date: 20160420
  Transmission Date: 20160815
  Serious: Yes (Other)
  Sender: FDA-Public Use
  Company Number: DE-CELGENEUS-062-C4047-11031330

PATIENT

DRUGS (3)
  1. ASPIRINE [Concomitant]
     Active Substance: ASPIRIN
     Indication: THROMBOSIS PROPHYLAXIS
     Route: 065
  2. PREDNISONE. [Concomitant]
     Active Substance: PREDNISONE
     Indication: MYELOPROLIFERATIVE NEOPLASM
     Route: 065
  3. CC-4047 [Suspect]
     Active Substance: POMALIDOMIDE
     Indication: MYELOPROLIFERATIVE NEOPLASM
     Dosage: 2 MILLIGRAM
     Route: 048

REACTIONS (14)
  - Hypertension [Unknown]
  - Cardiac failure [Unknown]
  - Blast cell crisis [Unknown]
  - Toxicity to various agents [Unknown]
  - Myeloproliferative neoplasm [Unknown]
  - Anaemia [Unknown]
  - General physical health deterioration [Unknown]
  - Embolism [Unknown]
  - Fatigue [Unknown]
  - Rash [Unknown]
  - Thrombocytopenia [Unknown]
  - Lung infection [Unknown]
  - Neutropenia [Unknown]
  - No therapeutic response [Unknown]
